FAERS Safety Report 13603928 (Version 1)
Quarter: 2017Q2

REPORT INFORMATION
  Report Type: Spontaneous
  Country: US (occurrence: US)
  Receive Date: 20170601
  Receipt Date: 20170601
  Transmission Date: 20170830
  Serious: Yes (Hospitalization)
  Sender: FDA-Public Use
  Company Number: None

PATIENT
  Age: 72 Year
  Sex: Male

DRUGS (2)
  1. MIRTAZAPINE. [Suspect]
     Active Substance: MIRTAZAPINE
     Indication: ANXIETY
     Route: 048
     Dates: start: 20170515, end: 20170524
  2. LORAZEPAM. [Suspect]
     Active Substance: LORAZEPAM
     Indication: ANXIETY
     Route: 048
     Dates: start: 20170505, end: 20170524

REACTIONS (7)
  - Mental status changes [None]
  - Miosis [None]
  - Confusional state [None]
  - Therapy cessation [None]
  - Respiratory disorder [None]
  - Respiratory depression [None]
  - Somnolence [None]

NARRATIVE: CASE EVENT DATE: 20170526
